FAERS Safety Report 8383898-4 (Version None)
Quarter: 2012Q2

REPORT INFORMATION
  Report Type: 
  Country: None (occurrence: None)
  Receive Date: 20120524
  Receipt Date: 20120515
  Transmission Date: 20120825
  Serious: Yes (Hospitalization)
  Sender: FDA-Public Use
  Company Number: HU-ROCHE-1058610

PATIENT
  Age: 66 Year
  Sex: Female
  Weight: 53 kg

DRUGS (4)
  1. VEMURAFENIB [Suspect]
     Dosage: LAST DOSE PRIOR TO SAE:12/APR/2012
     Route: 048
     Dates: start: 20120405, end: 20120412
  2. VEMURAFENIB [Suspect]
     Dosage: PERMANENTLY DISCONTINUED
     Route: 048
     Dates: start: 20120502, end: 20120505
  3. VEMURAFENIB [Suspect]
     Dosage: LAST DOSE PRIOR TO SAE: 26/APR/2012
     Route: 048
     Dates: start: 20120412, end: 20120426
  4. VEMURAFENIB [Suspect]
     Indication: MALIGNANT MELANOMA
     Dosage: LAST DOSE PRIOR TO SAE: 05/APR/2012
     Route: 048
     Dates: start: 20120313, end: 20120405

REACTIONS (1)
  - DERMATITIS EXFOLIATIVE [None]
